FAERS Safety Report 8082832-4 (Version None)
Quarter: 2012Q1

REPORT INFORMATION
  Report Type: 
  Country: None (occurrence: None)
  Receive Date: 20120127
  Receipt Date: 20110114
  Transmission Date: 20120608
  Serious: No
  Sender: FDA-Public Use
  Company Number: US-ABBOTT-11P-163-0697506-00

PATIENT
  Sex: Female
  Weight: 82.628 kg

DRUGS (2)
  1. PREDNISONE [Concomitant]
     Indication: PRODUCT USED FOR UNKNOWN INDICATION
     Dosage: 4 TABLETS/DAY AND DECREASING THE DOSE BY WEEK 4/WK THEN 3 TABLETS/DAY/WEEK
  2. HUMIRA [Suspect]
     Indication: PSORIATIC ARTHROPATHY
     Dates: start: 20101229

REACTIONS (3)
  - ARTHRALGIA [None]
  - DEVICE MALFUNCTION [None]
  - PAIN IN EXTREMITY [None]
